FAERS Safety Report 18674078 (Version 2)
Quarter: 2021Q1

REPORT INFORMATION
  Report Type: Spontaneous
  Country: CN (occurrence: CN)
  Receive Date: 20201229
  Receipt Date: 20210112
  Transmission Date: 20210419
  Serious: Yes (Hospitalization)
  Sender: FDA-Public Use
  Company Number: CN-TOPROL-2020000413

PATIENT
  Age: 68 Year
  Sex: Male
  Weight: 87 kg

DRUGS (4)
  1. BETALOC ZOK [Suspect]
     Active Substance: METOPROLOL SUCCINATE
     Indication: TACHYCARDIA
     Dosage: 1 DF DAILY, AT 9 O^CLOCK IN THE EVENING
  2. BAYASPIRIN [Concomitant]
     Active Substance: ASPIRIN
     Indication: THROMBOSIS
     Route: 048
  3. BETALOC ZOK [Suspect]
     Active Substance: METOPROLOL SUCCINATE
     Indication: TACHYCARDIA
  4. BETALOC [Suspect]
     Active Substance: METOPROLOL
     Indication: TACHYCARDIA
     Dosage: ONE PILL BEFORE BREAKFAST, ONE PILL AT 9PM, 10PM ON AN EMPTY STOMACH

REACTIONS (4)
  - Road traffic accident [Unknown]
  - Lower limb fracture [Unknown]
  - Drug ineffective [Recovered/Resolved]
  - Wrong technique in product usage process [Recovered/Resolved]

NARRATIVE: CASE EVENT DATE: 20201022
